FAERS Safety Report 8711448 (Version 4)
Quarter: 2012Q4

REPORT INFORMATION
  Report Type: Spontaneous
  Country: JP (occurrence: None)
  Receive Date: 20120723
  Receipt Date: 20121004
  Transmission Date: 20130627
  Serious: Yes (Hospitalization, Other)
  Sender: FDA-Public Use
  Company Number: JP-2012-15784

PATIENT
  Age: 86 Year
  Sex: Female
  Weight: 43 kg

DRUGS (8)
  1. SAMSCA [Suspect]
     Indication: CARDIAC FAILURE CONGESTIVE
     Dosage: 7.5 MG MILLIGRAM(S), QAM, ORAL
     Route: 048
     Dates: start: 20120628, end: 20120706
  2. ALDACTONE [Concomitant]
  3. WARFARIN SODIUM [Concomitant]
  4. LASIX [Concomitant]
  5. FOLIAMIN (FOLIC ACID) [Concomitant]
  6. JUVELA (TOCOPHERYL ACETATE) [Concomitant]
  7. FAMOTIDINE D (FAMOTIDINE) [Concomitant]
  8. FERROMIA (FERROUS SODIUM CITRATE) [Concomitant]

REACTIONS (8)
  - Liver disorder [None]
  - Subileus [None]
  - Hepatic artery embolism [None]
  - Abdominal pain [None]
  - Blood urea increased [None]
  - Hepatic enzyme increased [None]
  - Colitis ischaemic [None]
  - Constipation [None]
